FAERS Safety Report 7091144-7 (Version None)
Quarter: 2010Q4

REPORT INFORMATION
  Report Type: 
  Country: None (occurrence: None)
  Receive Date: 20101109
  Receipt Date: 20101029
  Transmission Date: 20110411
  Serious: Yes (Death, Other)
  Sender: FDA-Public Use
  Company Number: NL-ROCHE-730414

PATIENT
  Age: 5 Year
  Sex: Male

DRUGS (4)
  1. TAMIFLU [Suspect]
     Indication: H1N1 INFLUENZA
     Dosage: PEDIATRIC DOSE
     Route: 065
     Dates: start: 20091111, end: 20091203
  2. TAMIFLU [Suspect]
     Dosage: AS A TRIPLE THERAPY
     Route: 065
  3. RELENZA [Suspect]
     Indication: H1N1 INFLUENZA
     Route: 042
     Dates: start: 20091203
  4. RELENZA [Suspect]
     Dosage: REINITIATED
     Route: 042
     Dates: start: 20100111

REACTIONS (5)
  - ACUTE RESPIRATORY DISTRESS SYNDROME [None]
  - CYTOMEGALOVIRUS INFECTION [None]
  - DRUG INEFFECTIVE [None]
  - PATHOGEN RESISTANCE [None]
  - RHINOVIRUS INFECTION [None]
